FAERS Safety Report 6147660-5 (Version None)
Quarter: 2009Q2

REPORT INFORMATION
  Report Type: 
  Country: None (occurrence: None)
  Receive Date: 20090408
  Receipt Date: 20090331
  Transmission Date: 20091009
  Serious: Yes (Other)
  Sender: FDA-Public Use
  Company Number: PHHY2009US12129

PATIENT

DRUGS (5)
  1. CYCLOSPORINE [Suspect]
     Indication: STEM CELL TRANSPLANT
  2. MYCOPHENOLATE MOFETIL [Suspect]
     Indication: PROPHYLAXIS AGAINST GRAFT VERSUS HOST DISEASE
  3. BUSULFAN [Suspect]
     Indication: STEM CELL TRANSPLANT
     Dosage: 1 MG/KG/DOSE
     Route: 042
  4. CYCLOPHOSPHAMIDE [Suspect]
     Dosage: 50 MG/KG/DOSE
  5. ANTI-THYMOCYTE GLOBULIN NOS [Concomitant]
     Dosage: 30 MG/KG/DOSE

REACTIONS (3)
  - ACUTE GRAFT VERSUS HOST DISEASE IN SKIN [None]
  - PERICARDIAL EFFUSION [None]
  - STOMATITIS [None]
